FAERS Safety Report 4965749-0 (Version None)
Quarter: 2006Q2

REPORT INFORMATION
  Report Type: 
  Country: None (occurrence: None)
  Receive Date: 20060405
  Receipt Date: 20060405
  Transmission Date: 20061013
  Serious: No
  Sender: FDA-Public Use
  Company Number: None

PATIENT
  Sex: Male
  Weight: 25.4014 kg

DRUGS (2)
  1. ACETAMINOPHEN [Suspect]
     Indication: PYREXIA
     Dosage: TWO TABLETS  EVERY FOUR HOURS
     Dates: start: 20060325, end: 20060325
  2. ACETAMINOPHEN [Suspect]
     Indication: PYREXIA
     Dosage: TWO TABLETS  EVERY FOUR HOURS
     Dates: start: 20060401, end: 20060401

REACTIONS (5)
  - CONFUSIONAL STATE [None]
  - CRYING [None]
  - DYSPNOEA [None]
  - FEAR [None]
  - POOR QUALITY DRUG ADMINISTERED [None]
